FAERS Safety Report 16478754 (Version 1)
Quarter: 2019Q2

REPORT INFORMATION
  Report Type: Spontaneous
  Country: US (occurrence: US)
  Receive Date: 20190626
  Receipt Date: 20190626
  Transmission Date: 20190711
  Serious: No
  Sender: FDA-Public Use
  Company Number: US-PFIZER INC-2019273682

PATIENT
  Age: 36 Year
  Sex: Female

DRUGS (1)
  1. IBRANCE [Suspect]
     Active Substance: PALBOCICLIB
     Indication: BREAST CANCER METASTATIC
     Dosage: 125 MG, CYCLIC (125MG CAPSULE-TAKE 1 CAPSULE BY MOUTH DAILY ON DAYS 1-21, FOLLOWED BY A 7 DAY BREAK)
     Route: 048
     Dates: start: 20190417

REACTIONS (1)
  - Fatigue [Unknown]
